FAERS Safety Report 25756428 (Version 1)
Quarter: 2025Q3

REPORT INFORMATION
  Report Type: Spontaneous
  Country: EU (occurrence: EU)
  Receive Date: 20250903
  Receipt Date: 20250903
  Transmission Date: 20251020
  Serious: Yes (Hospitalization)
  Sender: NOVO NORDISK
  Company Number: EU-NOVOPROD-1508037

PATIENT
  Age: 16 Month
  Sex: Female
  Weight: 2.5 kg

DRUGS (1)
  1. OZEMPIC [Suspect]
     Active Substance: SEMAGLUTIDE
     Indication: Weight control
     Route: 064

REACTIONS (4)
  - Small for dates baby [Unknown]
  - Underweight [Unknown]
  - Blood glucose abnormal [Unknown]
  - Foetal exposure during pregnancy [Recovered/Resolved]
